FAERS Safety Report 10058814 (Version 1)
Quarter: 2014Q2

REPORT INFORMATION
  Report Type: Spontaneous
  Country: FR (occurrence: FR)
  Receive Date: 20140404
  Receipt Date: 20140404
  Transmission Date: 20141212
  Serious: Yes (Hospitalization)
  Sender: FDA-Public Use
  Company Number: FR-JNJFOC-20140316367

PATIENT
  Age: 83 Year
  Sex: Male

DRUGS (8)
  1. DUROGESIC [Suspect]
     Indication: PRODUCT USED FOR UNKNOWN INDICATION
     Route: 062
     Dates: start: 201307, end: 20140202
  2. PREVISCAN (FLUINDIONE) [Suspect]
     Indication: PRODUCT USED FOR UNKNOWN INDICATION
     Dosage: 1/4TH IN THE MORNING??1/4TH IN THE MORNING AND 1/2 IN THE NIGHT
     Route: 065
     Dates: start: 20140127
  3. HYDROXYZINE [Concomitant]
     Route: 065
  4. BISOPROLOL [Concomitant]
     Route: 065
  5. FORLAX [Concomitant]
     Route: 065
  6. KETODERM [Concomitant]
     Route: 065
  7. FUROSEMIDE [Concomitant]
     Route: 065
  8. ESOMEPRAZOLE [Concomitant]
     Route: 065

REACTIONS (1)
  - Depressed level of consciousness [Recovered/Resolved]
